FAERS Safety Report 17263505 (Version 1)
Quarter: 2020Q1

REPORT INFORMATION
  Report Type: Spontaneous
  Country: FR (occurrence: FR)
  Receive Date: 20200113
  Receipt Date: 20200113
  Transmission Date: 20200409
  Serious: Yes (Other)
  Sender: FDA-Public Use
  Company Number: FR-MYLANLABS-2020M1003788

PATIENT
  Age: 54 Year
  Sex: Female
  Weight: 79 kg

DRUGS (13)
  1. HALDOL [Suspect]
     Active Substance: HALOPERIDOL
     Indication: PRODUCT USED FOR UNKNOWN INDICATION
     Dosage: 15 MILLIGRAM, TOTAL
     Route: 048
     Dates: start: 20190921, end: 20190921
  2. IMOVANE [Concomitant]
     Active Substance: ZOPICLONE
     Dosage: NON ADMINISTR?
  3. LEPTICUR [Concomitant]
     Active Substance: TROPATEPINE HYDROCHLORIDE
     Dosage: NON ADMINISTR?
  4. TEMESTA                            /00273201/ [Suspect]
     Active Substance: LORAZEPAM
     Indication: PRODUCT USED FOR UNKNOWN INDICATION
     Dosage: 2.5 MILLIGRAM, TOTAL
     Route: 048
     Dates: start: 20190921, end: 20190921
  5. MESTINON [Suspect]
     Active Substance: PYRIDOSTIGMINE BROMIDE
     Indication: PRODUCT USED FOR UNKNOWN INDICATION
     Dosage: 60 MILLIGRAM, TOTAL
     Route: 048
     Dates: start: 20190921, end: 20190921
  6. AMLOR [Concomitant]
     Active Substance: AMLODIPINE BESYLATE
     Dosage: NON ADMINISTR?
  7. BIKTARVY [Concomitant]
     Active Substance: BICTEGRAVIR SODIUM\EMTRICITABINE\TENOFOVIR ALAFENAMIDE FUMARATE
     Dosage: NON ADMINISTR?
  8. RISPERDAL [Concomitant]
     Active Substance: RISPERIDONE
     Dosage: NON ADMINISTR?
  9. DEPAKOTE [Suspect]
     Active Substance: DIVALPROEX SODIUM
     Indication: PRODUCT USED FOR UNKNOWN INDICATION
     Dosage: 1000 MILLIGRAM, TOTAL
     Route: 048
     Dates: start: 20190921, end: 20190921
  10. LOXAPAC                            /00401802/ [Suspect]
     Active Substance: LOXAPINE SUCCINATE
     Indication: PRODUCT USED FOR UNKNOWN INDICATION
     Dosage: 1.5 DOSAGE FORM, TOTAL
     Route: 048
     Dates: start: 20190921, end: 20190921
  11. LOXAPAC                            /00401802/ [Concomitant]
     Active Substance: LOXAPINE SUCCINATE
     Dosage: NON ADMINISTR?
  12. CLOZAPINE MYLAN 100 MG, COMPRIM? S?CABLE [Suspect]
     Active Substance: CLOZAPINE
     Indication: PRODUCT USED FOR UNKNOWN INDICATION
     Dosage: 100 MILLIGRAM, TOTAL
     Route: 048
     Dates: start: 20190921, end: 20190921
  13. PHENERGAN [Suspect]
     Active Substance: PROMETHAZINE HYDROCHLORIDE
     Indication: PRODUCT USED FOR UNKNOWN INDICATION
     Dosage: 25 MILLIGRAM, TOTAL
     Route: 048
     Dates: start: 20190921, end: 20190921

REACTIONS (4)
  - Somnolence [Recovered/Resolved]
  - Bradykinesia [Recovered/Resolved]
  - Salivary hypersecretion [Recovered/Resolved]
  - Medication error [Unknown]

NARRATIVE: CASE EVENT DATE: 20190921
